FAERS Safety Report 5777814-9 (Version None)
Quarter: 2008Q2

REPORT INFORMATION
  Report Type: 
  Country: None (occurrence: None)
  Receive Date: 20080618
  Receipt Date: 20080611
  Transmission Date: 20081010
  Serious: Yes (Hospitalization, Other)
  Sender: FDA-Public Use
  Company Number: US-PFIZER INC-2008050011

PATIENT
  Sex: Female
  Weight: 99.3 kg

DRUGS (8)
  1. LYRICA [Suspect]
     Indication: NEUROPATHY PERIPHERAL
  2. NORVASC [Suspect]
     Dosage: DAILY DOSE:10MG
  3. ATARAX [Suspect]
     Indication: PRURITUS
  4. ANTIVERT [Suspect]
     Indication: DIZZINESS
  5. KEPPRA [Interacting]
     Indication: ESSENTIAL TREMOR
     Dates: start: 20080309, end: 20080309
  6. DURAGESIC-100 [Interacting]
     Indication: NEUROPATHY PERIPHERAL
  7. ZANTAC [Concomitant]
  8. MORPHINE [Concomitant]

REACTIONS (13)
  - ACUTE MYELOID LEUKAEMIA [None]
  - BLOOD URIC ACID ABNORMAL [None]
  - BREAKTHROUGH PAIN [None]
  - COMA [None]
  - CYTOGENETIC ABNORMALITY [None]
  - DIABETES MELLITUS [None]
  - DRUG HYPERSENSITIVITY [None]
  - DRUG INTERACTION [None]
  - ESSENTIAL TREMOR [None]
  - FLUID RETENTION [None]
  - NEUTROPENIA [None]
  - RASH [None]
  - RESTLESS LEGS SYNDROME [None]
